FAERS Safety Report 9327818 (Version 1)
Quarter: 2013Q2

REPORT INFORMATION
  Report Type: Spontaneous
  Country: US (occurrence: US)
  Receive Date: 20130604
  Receipt Date: 20130604
  Transmission Date: 20140414
  Serious: No
  Sender: FDA-Public Use
  Company Number: US-AMGEN-USASP2013034486

PATIENT
  Age: 66 Year
  Sex: Male
  Weight: 88.44 kg

DRUGS (9)
  1. ENBREL [Suspect]
     Indication: PSORIATIC ARTHROPATHY
     Dosage: 50 MG, TWICE A WEEK
     Route: 058
     Dates: start: 20100823
  2. ENBREL [Suspect]
     Indication: OSTEOARTHRITIS
  3. ENBREL [Suspect]
     Indication: APHTHOUS STOMATITIS
  4. ENBREL [Suspect]
     Indication: ORAL LICHEN PLANUS
  5. ACYCLOVIR                          /00587301/ [Concomitant]
     Dosage: UNK
  6. OXAPROZIN [Concomitant]
     Dosage: UNK
  7. ZOCOR [Concomitant]
     Dosage: UNK
  8. ORALONE [Concomitant]
     Dosage: UNK
  9. PROTOPIC [Concomitant]
     Dosage: UNK

REACTIONS (4)
  - Overdose [Recovered/Resolved]
  - Oral disorder [Recovered/Resolved]
  - Back pain [Recovered/Resolved]
  - Arthralgia [Recovered/Resolved]
